FAERS Safety Report 11870555 (Version 1)
Quarter: 2015Q4

REPORT INFORMATION
  Report Type: Spontaneous
  Country: US (occurrence: US)
  Receive Date: 20151228
  Receipt Date: 20151228
  Transmission Date: 20160305
  Serious: Yes (Hospitalization, Other)
  Sender: FDA-Public Use
  Company Number: US-SANOFI-AVENTIS-2012SA065692

PATIENT
  Age: 56 Year
  Sex: Male
  Weight: 121.5 kg

DRUGS (30)
  1. LOPRESSOR [Concomitant]
     Active Substance: METOPROLOL TARTRATE
  2. ALBUTEROL. [Concomitant]
     Active Substance: ALBUTEROL
  3. SIMVASTATIN. [Concomitant]
     Active Substance: SIMVASTATIN
     Dosage: 20 MG TABLET 1 ONCE A DAY FOR 90 DAYS, DISPENSE 90 UNSPECIFIED, REFILLS 3
  4. PLAVIX [Suspect]
     Active Substance: CLOPIDOGREL BISULFATE
     Indication: STENT PLACEMENT
     Route: 048
     Dates: end: 2010
  5. PLAVIX [Suspect]
     Active Substance: CLOPIDOGREL BISULFATE
     Indication: STENT PLACEMENT
  6. VERSED [Concomitant]
     Active Substance: MIDAZOLAM HYDROCHLORIDE
  7. PLAVIX [Suspect]
     Active Substance: CLOPIDOGREL BISULFATE
     Indication: MYOCARDIAL INFARCTION
     Route: 048
     Dates: end: 2010
  8. PLAVIX [Suspect]
     Active Substance: CLOPIDOGREL BISULFATE
     Indication: MYOCARDIAL INFARCTION
  9. LISINOPRIL. [Concomitant]
     Active Substance: LISINOPRIL
  10. PREVACID [Concomitant]
     Active Substance: LANSOPRAZOLE
     Indication: GASTROOESOPHAGEAL REFLUX DISEASE
  11. COREG [Concomitant]
     Active Substance: CARVEDILOL
  12. CAPTOPRIL. [Concomitant]
     Active Substance: CAPTOPRIL
  13. PLAVIX [Suspect]
     Active Substance: CLOPIDOGREL BISULFATE
     Indication: ACUTE CORONARY SYNDROME
     Route: 048
     Dates: start: 20050903
  14. LIPITOR [Concomitant]
     Active Substance: ATORVASTATIN CALCIUM
  15. XANAX [Concomitant]
     Active Substance: ALPRAZOLAM
  16. PLAVIX [Suspect]
     Active Substance: CLOPIDOGREL BISULFATE
     Indication: STENT PLACEMENT
     Route: 048
     Dates: start: 20050903
  17. PLAVIX [Suspect]
     Active Substance: CLOPIDOGREL BISULFATE
     Indication: ACUTE CORONARY SYNDROME
  18. PRILOSEC [Concomitant]
     Active Substance: OMEPRAZOLE MAGNESIUM
  19. ADVIL [Concomitant]
     Active Substance: IBUPROFEN
  20. IBUPROFEN. [Concomitant]
     Active Substance: IBUPROFEN
     Indication: PAIN
  21. PLAVIX [Suspect]
     Active Substance: CLOPIDOGREL BISULFATE
     Indication: MYOCARDIAL INFARCTION
     Route: 048
     Dates: start: 20050903
  22. PLAVIX [Suspect]
     Active Substance: CLOPIDOGREL BISULFATE
     Indication: ACUTE CORONARY SYNDROME
     Route: 048
     Dates: end: 2010
  23. CELEBREX [Concomitant]
     Active Substance: CELECOXIB
  24. ALDACTONE [Concomitant]
     Active Substance: SPIRONOLACTONE
  25. ASPIRIN. [Concomitant]
     Active Substance: ASPIRIN
  26. DEMEROL [Concomitant]
     Active Substance: MEPERIDINE HYDROCHLORIDE
  27. VICODIN [Concomitant]
     Active Substance: ACETAMINOPHEN\HYDROCODONE BITARTRATE
  28. METOPROLOL [Concomitant]
     Active Substance: METOPROLOL
  29. LASIX [Concomitant]
     Active Substance: FUROSEMIDE
  30. FISH OIL [Concomitant]
     Active Substance: FISH OIL
     Dosage: 300 MG-108 MG-162 MG

REACTIONS (6)
  - Haematochezia [Recovered/Resolved]
  - Internal haemorrhage [Unknown]
  - Gastrointestinal haemorrhage [Recovered/Resolved]
  - Ulcer haemorrhage [Unknown]
  - Blood urine present [Unknown]
  - Anaemia [Unknown]

NARRATIVE: CASE EVENT DATE: 200510
